FAERS Safety Report 5408232-0 (Version None)
Quarter: 2007Q3

REPORT INFORMATION
  Report Type: 
  Country: None (occurrence: None)
  Receive Date: 20070806
  Receipt Date: 20070806
  Transmission Date: 20080115
  Serious: Yes (Hospitalization)
  Sender: FDA-Public Use
  Company Number: None

PATIENT
  Age: 57 Year
  Sex: Female
  Weight: 61.2356 kg

DRUGS (11)
  1. SUTENT [Suspect]
     Indication: METASTATIC MALIGNANT MELANOMA
     Dosage: 37.5MG ORAL DAILY
     Route: 048
     Dates: start: 20070328, end: 20070802
  2. DYAZIDE [Concomitant]
  3. COZAAR [Concomitant]
  4. WELLBUTRIN SR [Concomitant]
  5. PAXIL [Concomitant]
  6. PREMARIN [Concomitant]
  7. VALIUM [Concomitant]
  8. HYDROCODONE BITARTRATE [Concomitant]
  9. SYNTHROID [Concomitant]
  10. PRILOSEC [Concomitant]
  11. BACTRIM [Concomitant]

REACTIONS (9)
  - ANAEMIA MACROCYTIC [None]
  - BLOOD LACTATE DEHYDROGENASE INCREASED [None]
  - CHILLS [None]
  - FATIGUE [None]
  - HYPOTENSION [None]
  - LOCALISED INFECTION [None]
  - PYREXIA [None]
  - SKIN ULCER [None]
  - THROMBOCYTOPENIA [None]
